FAERS Safety Report 20048849 (Version 1)
Quarter: 2021Q4

REPORT INFORMATION
  Report Type: Spontaneous
  Country: US (occurrence: US)
  Receive Date: 20211109
  Receipt Date: 20211109
  Transmission Date: 20220303
  Serious: No
  Sender: FDA-Public Use
  Company Number: US-Accord-218157

PATIENT
  Sex: Female
  Weight: 72.57 kg

DRUGS (3)
  1. HYDROCHLOROTHIAZIDE [Suspect]
     Active Substance: HYDROCHLOROTHIAZIDE
     Indication: Type 2 diabetes mellitus
     Dosage: ONCE A DAY
     Route: 048
     Dates: start: 201912
  2. LISINOPRIL [Concomitant]
     Active Substance: LISINOPRIL
  3. GLIPIZIDE [Concomitant]
     Active Substance: GLIPIZIDE

REACTIONS (4)
  - Erythema [Recovered/Resolved]
  - Burning sensation [Recovered/Resolved]
  - Product substitution issue [Unknown]
  - Off label use [Unknown]
